FAERS Safety Report 9156672 (Version 1)
Quarter: 2013Q1

REPORT INFORMATION
  Report Type: Spontaneous
  Country: US (occurrence: None)
  Receive Date: 20130208
  Receipt Date: 20130208
  Transmission Date: 20140127
  Serious: Yes (Other)
  Sender: FDA-Public Use
  Company Number: US-CLINIGEN HEALTHCARE LIMITED-003036

PATIENT
  Age: 66 Year
  Sex: Male

DRUGS (3)
  1. FOSCAVIR (FOSCAVIR) [Suspect]
     Indication: CYTOMEGALOVIRUS CHORIORETINITIS
  2. CHEMOTHERAPEUTICS NOS (CHEMOTHERAPEUTICS NOS) [Concomitant]
  3. VALGANCICLOVIR (VALGANCICLOVIR) [Concomitant]

REACTIONS (11)
  - Blindness [None]
  - B-cell lymphoma [None]
  - Metastasis [None]
  - Off label use [None]
  - No therapeutic response [None]
  - Pulmonary mass [None]
  - Retinal infiltrates [None]
  - Retinal haemorrhage [None]
  - Vasculitis [None]
  - Chorioretinal scar [None]
  - Fungal infection [None]
